FAERS Safety Report 5577268-1 (Version None)
Quarter: 2007Q4

REPORT INFORMATION
  Report Type: 
  Country: None (occurrence: None)
  Receive Date: 20071130
  Receipt Date: 20070924
  Transmission Date: 20080405
  Serious: No
  Sender: FDA-Public Use
  Company Number: US200709005767

PATIENT
  Age: 69 Year
  Sex: Female

DRUGS (2)
  1. BYETTA [Suspect]
     Dosage: 5 UG, SUBCUTANEOUS
     Route: 058
  2. . [Concomitant]

REACTIONS (2)
  - EARLY SATIETY [None]
  - WEIGHT DECREASED [None]
